FAERS Safety Report 4497806-X (Version None)
Quarter: 2004Q4

REPORT INFORMATION
  Report Type: 
  Country: None (occurrence: None)
  Receive Date: 20041104
  Receipt Date: 20041020
  Transmission Date: 20050328
  Serious: Yes (Hospitalization)
  Sender: FDA-Public Use
  Company Number: 2004EU001886

PATIENT
  Age: 13 Year
  Sex: Male

DRUGS (2)
  1. PROGRAF [Suspect]
     Indication: RENAL TRANSPLANT
     Dosage: 5.00 MG, UID/QD,
  2. JOSACINE (JOSAMYCIN) [Suspect]
     Dosage: ORAL
     Route: 048
     Dates: start: 20040924, end: 20040927

REACTIONS (5)
  - BLOOD CREATININE INCREASED [None]
  - DRUG INTERACTION [None]
  - IMMUNOSUPPRESSANT DRUG LEVEL INCREASED [None]
  - PANCREATITIS [None]
  - PHARYNGOLARYNGEAL PAIN [None]
